FAERS Safety Report 19228887 (Version 2)
Quarter: 2021Q3

REPORT INFORMATION
  Report Type: Spontaneous
  Country: US (occurrence: US)
  Receive Date: 20210506
  Receipt Date: 20210708
  Transmission Date: 20211014
  Serious: Yes (Other)
  Sender: FDA-Public Use
  Company Number: US-ROCHE-2772683

PATIENT
  Sex: Female

DRUGS (1)
  1. ESBRIET [Suspect]
     Active Substance: PIRFENIDONE
     Indication: IDIOPATHIC PULMONARY FIBROSIS
     Dosage: DOSE : UNKNOWN
     Route: 048
     Dates: start: 2015, end: 202002

REACTIONS (5)
  - Nerve compression [Unknown]
  - Joint swelling [Unknown]
  - COVID-19 [Unknown]
  - Transplant rejection [Unknown]
  - Pain [Unknown]
